FAERS Safety Report 13141627 (Version 1)
Quarter: 2017Q1

REPORT INFORMATION
  Report Type: Spontaneous
  Country: US (occurrence: US)
  Receive Date: 20170123
  Receipt Date: 20170123
  Transmission Date: 20170428
  Serious: Yes (Hospitalization)
  Sender: FDA-Public Use
  Company Number: None

PATIENT
  Age: 28 Year
  Sex: Male
  Weight: 65 kg

DRUGS (2)
  1. IPILIMUMAB [Suspect]
     Active Substance: IPILIMUMAB
     Indication: METASTATIC MALIGNANT MELANOMA
     Dosage: ?          OTHER FREQUENCY:Q3WEEKS;?
     Route: 040
     Dates: start: 20161227, end: 20161227
  2. NIVOLUMAB [Suspect]
     Active Substance: NIVOLUMAB
     Indication: METASTATIC MALIGNANT MELANOMA
     Dosage: ?          OTHER FREQUENCY:Q3WEEKS;?
     Route: 040
     Dates: start: 20161227, end: 20161227

REACTIONS (1)
  - Meningitis aseptic [None]

NARRATIVE: CASE EVENT DATE: 20170117
